FAERS Safety Report 8970374 (Version 1)
Quarter: 2012Q4

REPORT INFORMATION
  Report Type: 
  Country: US (occurrence: US)
  Receive Date: 20121218
  Receipt Date: 20121218
  Transmission Date: 20130627
  Serious: No
  Sender: FDA-Public Use
  Company Number: US-BRISTOL-MYERS SQUIBB COMPANY-17054131

PATIENT
  Age: 36 Year
  Sex: Male

DRUGS (2)
  1. ABILIFY [Suspect]
     Indication: MAJOR DEPRESSION
     Dosage: Dose increased to 10mg + 15mg
     Dates: start: 2012
  2. LEXAPRO [Concomitant]

REACTIONS (1)
  - Drug ineffective [Unknown]
